FAERS Safety Report 6998993-1 (Version None)
Quarter: 2010Q3

REPORT INFORMATION
  Report Type: 
  Country: None (occurrence: None)
  Receive Date: 20100920
  Receipt Date: 20100716
  Transmission Date: 20110219
  Serious: Yes (Hospitalization)
  Sender: FDA-Public Use
  Company Number: US-ASTRAZENECA-2010SE33313

PATIENT

DRUGS (2)
  1. SEROQUEL [Suspect]
     Route: 048
     Dates: start: 20100601
  2. LEXAPRO [Suspect]
     Dates: start: 20100601

REACTIONS (1)
  - ATRIAL FIBRILLATION [None]
